FAERS Safety Report 17024218 (Version 2)
Quarter: 2020Q1

REPORT INFORMATION
  Report Type: Report from Study
  Country: US (occurrence: US)
  Receive Date: 20191113
  Receipt Date: 20200203
  Transmission Date: 20200409
  Serious: Yes (Other)
  Sender: FDA-Public Use
  Company Number: US-BEH-2019109303

PATIENT
  Age: 14 Year
  Sex: Male

DRUGS (2)
  1. HAEGARDA [Suspect]
     Active Substance: HUMAN C1-ESTERASE INHIBITOR
     Indication: PROPHYLAXIS
  2. HAEGARDA [Suspect]
     Active Substance: HUMAN C1-ESTERASE INHIBITOR
     Indication: HEREDITARY ANGIOEDEMA
     Dosage: 5 Q 4000 UNITS 4000 2 WEEKLY
     Route: 058
     Dates: start: 20160921

REACTIONS (3)
  - No adverse event [Unknown]
  - Product dose omission [Unknown]
  - Hereditary angioedema [Unknown]

NARRATIVE: CASE EVENT DATE: 20200119
